FAERS Safety Report 17069308 (Version 1)
Quarter: 2019Q4

REPORT INFORMATION
  Report Type: Spontaneous
  Country: DE (occurrence: DE)
  Receive Date: 20191125
  Receipt Date: 20191125
  Transmission Date: 20200122
  Serious: Yes (Other)
  Sender: FDA-Public Use
  Company Number: DE-ABBVIE-19P-062-2897305-00

PATIENT
  Age: 4 Month
  Sex: Male
  Weight: 4.5 kg

DRUGS (5)
  1. CREON [Suspect]
     Active Substance: PANCRELIPASE AMYLASE\PANCRELIPASE LIPASE\PANCRELIPASE PROTEASE
     Indication: PANCREATIC FAILURE
     Dosage: DAILY DOSE: UNKNOWN; AT EACH MEAL (5 TO 6 TIMES)
     Route: 048
     Dates: start: 20190605, end: 20190715
  2. CREON [Suspect]
     Active Substance: PANCRELIPASE AMYLASE\PANCRELIPASE LIPASE\PANCRELIPASE PROTEASE
     Route: 048
     Dates: start: 20190720
  3. DEKRISTOL [Concomitant]
     Active Substance: CHOLECALCIFEROL
     Indication: VITAMIN D DEFICIENCY
     Route: 048
     Dates: start: 20190323
  4. PREDNISOLON [Concomitant]
     Active Substance: PREDNISOLONE
     Indication: INTERSTITIAL LUNG DISEASE
     Dosage: DAILY DOSE: UNKNOWN; FREQUENCY: 1-0-1/2
     Route: 048
     Dates: start: 20190605
  5. INFATRINI [Concomitant]
     Indication: PRODUCT USED FOR UNKNOWN INDICATION
     Dates: start: 201904

REACTIONS (2)
  - Pneumonia [Unknown]
  - Vomiting projectile [Recovered/Resolved]
